FAERS Safety Report 5961138-0 (Version None)
Quarter: 2008Q4

REPORT INFORMATION
  Report Type: 
  Country: None (occurrence: None)
  Receive Date: 20081119
  Receipt Date: 20081110
  Transmission Date: 20090506
  Serious: Yes (Hospitalization)
  Sender: FDA-Public Use
  Company Number: 2008SP022090

PATIENT
  Age: 46 Year
  Sex: Male

DRUGS (5)
  1. PEG-INTRON [Suspect]
     Indication: HEPATITIS C
     Dosage: SC; SC
     Route: 058
     Dates: start: 20080617
  2. REBETOL [Suspect]
     Indication: HEPATITIS C
     Dosage: PO; PO
     Route: 048
     Dates: start: 20080617
  3. PLAVIX [Suspect]
     Indication: CARDIAC DISORDER
  4. DILANTIN [Suspect]
     Indication: DRUG USE FOR UNKNOWN INDICATION
  5. PLAVIX [Concomitant]

REACTIONS (7)
  - CHEST PAIN [None]
  - EPISTAXIS [None]
  - HEADACHE [None]
  - PHOTOPHOBIA [None]
  - PNEUMONIA [None]
  - PYREXIA [None]
  - TOOTH DISORDER [None]
